FAERS Safety Report 5209700-7 (Version None)
Quarter: 2006Q4

REPORT INFORMATION
  Report Type: 
  Country: None (occurrence: None)
  Receive Date: 20061120
  Receipt Date: 20060123
  Transmission Date: 20070319
  Serious: Yes (Hospitalization)
  Sender: FDA-Public Use
  Company Number: 340001K06USA

PATIENT
  Age: 24 Year
  Sex: Female

DRUGS (1)
  1. OVIDREL [Suspect]
     Indication: INFERTILITY FEMALE
     Dates: start: 20060106

REACTIONS (5)
  - ABDOMINAL DISTENSION [None]
  - AMENORRHOEA [None]
  - BLOOD OESTROGEN INCREASED [None]
  - RETCHING [None]
  - STOMACH DISCOMFORT [None]
